FAERS Safety Report 23402381 (Version 1)
Quarter: 2024Q1

REPORT INFORMATION
  Report Type: Spontaneous
  Country: CO (occurrence: CO)
  Receive Date: 20240115
  Receipt Date: 20240115
  Transmission Date: 20240409
  Serious: Yes (Other)
  Sender: FDA-Public Use
  Company Number: CO-002147023-NVSC2021CO034106

PATIENT
  Sex: Female
  Weight: 56 kg

DRUGS (5)
  1. RUXOLITINIB [Suspect]
     Active Substance: RUXOLITINIB
     Indication: Myelofibrosis
     Dosage: 10 MG, Q12H (STARTED 2 YEARS AGO)
     Route: 048
     Dates: start: 20201217
  2. RUXOLITINIB [Suspect]
     Active Substance: RUXOLITINIB
     Dosage: 15 MG, Q12H
     Route: 065
  3. LOSARTAN [Suspect]
     Active Substance: LOSARTAN
     Indication: Hypertension
     Dosage: 50 MG, Q12H (STARTED 1 YEAR AGO)
     Route: 048
  4. FUROSEMIDE [Concomitant]
     Active Substance: FUROSEMIDE
     Indication: Fluid retention
     Dosage: 40 MG, QD (STARTED 1 YEAR AGO)
     Route: 048
  5. WARFARIN [Concomitant]
     Active Substance: WARFARIN
     Indication: Anticoagulant therapy
     Dosage: 5 MG, QD (OVER ONE YEAR AGO)
     Route: 048

REACTIONS (4)
  - Myelodysplastic syndrome [Unknown]
  - Iron overload [Unknown]
  - Visual impairment [Unknown]
  - Blood iron increased [Unknown]
